FAERS Safety Report 9162603 (Version 4)
Quarter: 2013Q2

REPORT INFORMATION
  Report Type: Spontaneous
  Country: US (occurrence: US)
  Receive Date: 20130314
  Receipt Date: 20130619
  Transmission Date: 20140414
  Serious: Yes (Other)
  Sender: FDA-Public Use
  Company Number: US-SANOFI-AVENTIS-2013SA024850

PATIENT
  Age: 59 Year
  Sex: Male
  Weight: 78.47 kg

DRUGS (1)
  1. AUBAGIO [Suspect]
     Indication: MULTIPLE SCLEROSIS
     Route: 048
     Dates: start: 201301

REACTIONS (6)
  - Bronchitis [Recovering/Resolving]
  - Urinary tract infection [Recovered/Resolved]
  - Calculus bladder [Unknown]
  - Fatigue [Recovered/Resolved]
  - Incontinence [Unknown]
  - Hypertension [Unknown]
